FAERS Safety Report 17721240 (Version 1)
Quarter: 2020Q2

REPORT INFORMATION
  Report Type: Spontaneous
  Country: US (occurrence: US)
  Receive Date: 20200429
  Receipt Date: 20200429
  Transmission Date: 20200714
  Serious: No
  Sender: FDA-Public Use
  Company Number: US-GLENMARK PHARMACEUTICALS-2019GMK044359

PATIENT

DRUGS (4)
  1. TRIAMCINOLONE ACETONIDE OINTMENT USP [Suspect]
     Active Substance: TRIAMCINOLONE ACETONIDE
     Indication: CYST
     Dosage: UNK, TID
     Route: 061
     Dates: start: 20190327
  2. METFORMIN [Concomitant]
     Active Substance: METFORMIN HYDROCHLORIDE
     Indication: GLUCOSE TOLERANCE IMPAIRED
     Dosage: 500 MG, TID
     Route: 065
  3. ESTROGEN [Concomitant]
     Active Substance: ESTROGENS
     Indication: HYSTERECTOMY
     Dosage: UNK (VERY SMALL AMOUNT)
     Route: 065
  4. TRIAMCINOLONE ACETONIDE OINTMENT USP [Suspect]
     Active Substance: TRIAMCINOLONE ACETONIDE
     Dosage: UNK, TID
     Route: 061
     Dates: start: 2019

REACTIONS (1)
  - Drug ineffective for unapproved indication [Unknown]

NARRATIVE: CASE EVENT DATE: 2019
